FAERS Safety Report 4451227-4 (Version None)
Quarter: 2004Q3

REPORT INFORMATION
  Report Type: 
  Country: None (occurrence: None)
  Receive Date: 20040914
  Receipt Date: 20040825
  Transmission Date: 20050211
  Serious: Yes (Death)
  Sender: FDA-Public Use
  Company Number: A0524705A

PATIENT
  Age: 47 Year
  Sex: Male
  Weight: 81.6475 kg

DRUGS (1)
  1. PAXIL CR [Suspect]
     Dosage: 12.5 MG/ ORAL
     Route: 048
     Dates: start: 20040501

REACTIONS (1)
  - COMPLETED SUICIDE [None]
